FAERS Safety Report 14375511 (Version 1)
Quarter: 2018Q1

REPORT INFORMATION
  Report Type: Report from Study
  Country: EG (occurrence: EG)
  Receive Date: 20180111
  Receipt Date: 20180111
  Transmission Date: 20180509
  Serious: Yes (Hospitalization)
  Sender: FDA-Public Use
  Company Number: EG-ELI_LILLY_AND_COMPANY-EG201709008382

PATIENT
  Age: 62 Year
  Sex: Female

DRUGS (6)
  1. BLOKATENS [Concomitant]
     Indication: HYPERTENSION
     Dosage: UNK, DAILY
     Route: 048
     Dates: start: 201703, end: 20170820
  2. TERIPARATIDE [Suspect]
     Active Substance: TERIPARATIDE
     Indication: OSTEOPOROSIS
     Dosage: 20 UG, DAILY
     Route: 058
     Dates: start: 201704
  3. TERIPARATIDE [Suspect]
     Active Substance: TERIPARATIDE
     Dosage: 20 UG, DAILY
     Route: 058
     Dates: end: 201712
  4. MIXTARD                            /00806401/ [Concomitant]
     Active Substance: INSULIN HUMAN
     Indication: DIABETES MELLITUS
     Dosage: 30-40 IU
     Route: 058
  5. FEBURIC [Concomitant]
     Active Substance: FEBUXOSTAT
     Indication: BLOOD URIC ACID
  6. CALCIUM 600 WITH VITAMIN D3 [Concomitant]
     Active Substance: CALCIUM CARBONATE\VITAMIN D
     Indication: OSTEOPOROSIS
     Dosage: UNK, DAILY
     Route: 048

REACTIONS (15)
  - Bone pain [Recovering/Resolving]
  - Headache [Not Recovered/Not Resolved]
  - Vertigo [Unknown]
  - Tympanic membrane perforation [Unknown]
  - Hypertension [Unknown]
  - Hypertension [Not Recovered/Not Resolved]
  - Hypertension [Recovering/Resolving]
  - Vertigo [Recovered/Resolved]
  - Vertigo [Recovering/Resolving]
  - Dizziness [Unknown]
  - Pyrexia [Unknown]
  - Vomiting [Unknown]
  - Cystitis noninfective [Unknown]
  - Body temperature increased [Recovering/Resolving]
  - Blood pressure decreased [Recovering/Resolving]

NARRATIVE: CASE EVENT DATE: 20170820
